FAERS Safety Report 19484276 (Version 1)
Quarter: 2021Q3

REPORT INFORMATION
  Report Type: Spontaneous
  Country: LT (occurrence: LT)
  Receive Date: 20210701
  Receipt Date: 20210701
  Transmission Date: 20211014
  Serious: Yes (Other)
  Sender: FDA-Public Use
  Company Number: LT-BAUSCH-BL-2021-021654

PATIENT
  Age: 45 Year
  Sex: Male

DRUGS (5)
  1. SULFAMETHOXAZOLE;TRIMETHOPRIM [Concomitant]
     Active Substance: SULFAMETHOXAZOLE\TRIMETHOPRIM
     Indication: PNEUMONIA
     Dosage: DOSE: 400/80 MILLIGRAM; BID
  2. DEXAMETHASONE. [Suspect]
     Active Substance: DEXAMETHASONE
     Indication: PERICARDIAL MESOTHELIOMA MALIGNANT
     Dosage: UNKNOWN DOSE
     Route: 065
  3. TORASEMIDE [Concomitant]
     Active Substance: TORSEMIDE
     Indication: DIURETIC THERAPY
     Route: 048
  4. SPIRONOLACTONE. [Concomitant]
     Active Substance: SPIRONOLACTONE
     Indication: DIURETIC THERAPY
     Route: 048
  5. DEXAMETHASONE. [Suspect]
     Active Substance: DEXAMETHASONE
     Indication: SARCOMATOID MESOTHELIOMA
     Route: 065

REACTIONS (1)
  - Peptic ulcer perforation [Unknown]
